FAERS Safety Report 9753131 (Version 1)
Quarter: 2013Q4

REPORT INFORMATION
  Report Type: Spontaneous
  Country: US (occurrence: US)
  Receive Date: 20131213
  Receipt Date: 20131213
  Transmission Date: 20140711
  Serious: No
  Sender: FDA-Public Use
  Company Number: US-GILEAD-2010-0026451

PATIENT
  Sex: Female
  Weight: 115.67 kg

DRUGS (16)
  1. LETAIRIS [Suspect]
     Indication: PULMONARY ARTERIAL HYPERTENSION
     Route: 048
     Dates: start: 20091228
  2. FUROSEMIDE [Concomitant]
  3. ATENOLOL [Concomitant]
  4. FLUTICASONE [Concomitant]
  5. RANTIDINE [Concomitant]
  6. FLUOCINONIDE [Concomitant]
  7. SIMVASTATIN [Concomitant]
  8. ISOSORBIDE [Concomitant]
  9. WARFARIN SODIUM [Concomitant]
  10. NEXIUM [Concomitant]
  11. ASPIRIN [Concomitant]
  12. OXYCODONE-APAP [Concomitant]
  13. DAILY MULTIVITAMIN [Concomitant]
  14. WARFARIN [Concomitant]
  15. FLUOXETINE [Concomitant]
  16. GLIPIZIDE XL [Concomitant]

REACTIONS (3)
  - Epistaxis [Unknown]
  - Chest discomfort [Unknown]
  - Dyspnoea [Unknown]
